FAERS Safety Report 23560616 (Version 2)
Quarter: 2024Q1

REPORT INFORMATION
  Report Type: Report from Study
  Country: IT (occurrence: IT)
  Receive Date: 20240223
  Receipt Date: 20240321
  Transmission Date: 20240410
  Serious: Yes (Other)
  Sender: FDA-Public Use
  Company Number: IT-KYOWAKIRIN-2024KK002880

PATIENT

DRUGS (10)
  1. MOGAMULIZUMAB [Suspect]
     Active Substance: MOGAMULIZUMAB
     Indication: Cutaneous T-cell lymphoma
     Dosage: 48 MG, 1X/WEEK
     Route: 042
     Dates: start: 20240129
  2. MOGAMULIZUMAB [Suspect]
     Active Substance: MOGAMULIZUMAB
     Dosage: 48 MG, 1X/WEEK
     Route: 065
     Dates: start: 20240226
  3. BACTRIM [Suspect]
     Active Substance: SULFAMETHOXAZOLE\TRIMETHOPRIM
     Indication: Cutaneous T-cell lymphoma
     Dosage: (160+800 MG) CP, 3X/WEEK
     Route: 065
     Dates: start: 20240129
  4. ACYCLOVIR [Suspect]
     Active Substance: ACYCLOVIR
     Indication: Cutaneous T-cell lymphoma
     Dosage: 400 MG, BID, (CP)
     Route: 065
     Dates: start: 20240129
  5. LEVOTHYROXINE SODIUM [Concomitant]
     Active Substance: LEVOTHYROXINE SODIUM
     Indication: Thyroiditis
     Dosage: 100 UG, QD
     Route: 048
     Dates: start: 20200101
  6. CARDURA [Concomitant]
     Active Substance: DOXAZOSIN MESYLATE
     Indication: Hypertension
     Dosage: 2 MG, 1/2 DAILY
     Route: 048
     Dates: start: 20160201
  7. TOUJEO [Concomitant]
     Active Substance: INSULIN GLARGINE
     Indication: Diabetes mellitus
     Dosage: 300 IU/ML, QD
     Route: 048
     Dates: start: 20140101
  8. RAMIPRIL [Concomitant]
     Active Substance: RAMIPRIL
     Indication: Hypertension
     Dosage: 10 MG, QD
     Route: 048
     Dates: start: 20160201
  9. PREGABALIN [Concomitant]
     Active Substance: PREGABALIN
     Indication: Neuropathy peripheral
     Dosage: 75 MG, QD
     Route: 048
     Dates: start: 20230821
  10. HYDROXYCHLOROQUINE DIPHOSPHATE [Concomitant]
     Active Substance: HYDROXYCHLOROQUINE DIPHOSPHATE
     Indication: Osteoporosis
     Dosage: 200 MG, QD
     Route: 048
     Dates: start: 20180110

REACTIONS (2)
  - Erythema [Recovered/Resolved]
  - Pruritus [Recovered/Resolved]

NARRATIVE: CASE EVENT DATE: 20240216
